FAERS Safety Report 8773631 (Version 4)
Quarter: 2012Q4

REPORT INFORMATION
  Report Type: 
  Country: US (occurrence: US)
  Receive Date: 20120907
  Receipt Date: 20121224
  Transmission Date: 20130627
  Serious: Yes (Other)
  Sender: FDA-Public Use
  Company Number: PHEH2012US008298

PATIENT
  Age: 7 Year
  Sex: Male

DRUGS (8)
  1. AFINITOR [Suspect]
     Indication: TUBEROUS SCLEROSIS
     Dosage: 5 mg, daily
     Route: 048
     Dates: start: 20120404
  2. AFINITOR [Suspect]
     Dosage: 10 mg/day
     Route: 048
     Dates: start: 20120404
  3. CLONAZEPAM [Concomitant]
  4. CLONIDINE [Concomitant]
  5. TRILEPTAL [Concomitant]
  6. FOCALIN [Concomitant]
  7. RISPERDAL [Concomitant]
  8. LISINOPRIL [Concomitant]
     Indication: HYPERTENSION

REACTIONS (12)
  - Joint dislocation [Unknown]
  - Arthropathy [Unknown]
  - Decubitus ulcer [Unknown]
  - Enuresis [Unknown]
  - Rhinorrhoea [Not Recovered/Not Resolved]
  - Erythema [Not Recovered/Not Resolved]
  - Hypertension [Unknown]
  - Fatigue [Unknown]
  - Diarrhoea [Unknown]
  - Croup infectious [Unknown]
  - Cough [Unknown]
  - Pyrexia [Unknown]
